FAERS Safety Report 14039571 (Version 3)
Quarter: 2018Q4

REPORT INFORMATION
  Report Type: Spontaneous
  Country: CZ (occurrence: CZ)
  Receive Date: 20171004
  Receipt Date: 20181009
  Transmission Date: 20190204
  Serious: Yes (Other)
  Sender: FDA-Public Use
  Company Number: CZ-NAPPMUNDI-GBR-2017-0049323

PATIENT
  Age: 40 Year
  Sex: Female

DRUGS (1)
  1. TARGIN [Suspect]
     Active Substance: NALOXONE HYDROCHLORIDE\OXYCODONE HYDROCHLORIDE
     Indication: WRONG PRODUCT ADMINISTERED
     Dosage: 40MG /20 MG
     Route: 048
     Dates: start: 20170507

REACTIONS (4)
  - Oculogyric crisis [Recovered/Resolved]
  - Movement disorder [Recovered/Resolved]
  - Dystonia [Recovered/Resolved]
  - Wrong product administered [Recovered/Resolved]

NARRATIVE: CASE EVENT DATE: 20170507
